FAERS Safety Report 12983586 (Version 1)
Quarter: 2016Q4

REPORT INFORMATION
  Report Type: Report from Study
  Country: DE (occurrence: DE)
  Receive Date: 20161129
  Receipt Date: 20161129
  Transmission Date: 20170207
  Serious: Yes (Hospitalization, Other)
  Sender: FDA-Public Use
  Company Number: DE-JNJFOC-20121203046

PATIENT
  Age: 5 Decade
  Sex: Male

DRUGS (1)
  1. SIMPONI [Suspect]
     Active Substance: GOLIMUMAB
     Indication: PSORIATIC ARTHROPATHY
     Route: 065
     Dates: start: 20110905

REACTIONS (3)
  - Atrial fibrillation [Recovering/Resolving]
  - Colon cancer metastatic [Not Recovered/Not Resolved]
  - Cerebellar infarction [Recovered/Resolved]

NARRATIVE: CASE EVENT DATE: 20121115
